FAERS Safety Report 16780310 (Version 3)
Quarter: 2020Q3

REPORT INFORMATION
  Report Type: Report from Study
  Country: US (occurrence: US)
  Receive Date: 20190906
  Receipt Date: 20200708
  Transmission Date: 20201102
  Serious: Yes (Other)
  Sender: FDA-Public Use
  Company Number: US-EMD SERONO-9104229

PATIENT
  Age: 35 Year
  Sex: Female

DRUGS (1)
  1. MAVENCLAD [Suspect]
     Active Substance: CLADRIBINE
     Indication: MULTIPLE SCLEROSIS
     Dosage: FIRST MONTH THERAPY: TWO TABLETS ON DAYS 1 TO 3 AND ONE TABLET ON DAYS 4 AND 5.
     Route: 048
     Dates: start: 20190708

REACTIONS (5)
  - Somnolence [Unknown]
  - Maternal exposure during pregnancy [Unknown]
  - Ectopic pregnancy [Unknown]
  - Contraindicated product administered [Unknown]
  - Fatigue [Unknown]

NARRATIVE: CASE EVENT DATE: 201907
